FAERS Safety Report 20535511 (Version 1)
Quarter: 2022Q1

REPORT INFORMATION
  Report Type: Spontaneous
  Country: IT (occurrence: IT)
  Receive Date: 20220302
  Receipt Date: 20220302
  Transmission Date: 20220423
  Serious: Yes (Death, Life-Threatening)
  Sender: FDA-Public Use
  Company Number: IT-BAYER-2021-199553

PATIENT
  Age: 48 Year
  Sex: Female

DRUGS (2)
  1. RIVAROXABAN [Suspect]
     Active Substance: RIVAROXABAN
     Indication: Embolism
     Dosage: UNK
     Route: 048
  2. DABIGATRAN [Suspect]
     Active Substance: DABIGATRAN
     Indication: Embolism
     Dosage: UNK
     Route: 065

REACTIONS (7)
  - Cerebral haemorrhage [Fatal]
  - Cerebral mass effect [Fatal]
  - Intraventricular haemorrhage [Fatal]
  - Nervous system disorder [Fatal]
  - Brain abscess [Unknown]
  - Off label use [Unknown]
  - Off label use [Unknown]
